FAERS Safety Report 10094028 (Version 1)
Quarter: 2014Q2

REPORT INFORMATION
  Report Type: Spontaneous
  Country: US (occurrence: US)
  Receive Date: 20140422
  Receipt Date: 20140422
  Transmission Date: 20141212
  Serious: Yes (Other)
  Sender: FDA-Public Use
  Company Number: US-ROCHE-1387692

PATIENT
  Age: 16 Year
  Sex: Female

DRUGS (3)
  1. XOLAIR [Suspect]
     Indication: ASTHMA
     Route: 065
     Dates: start: 20130101
  2. XOLAIR [Suspect]
     Route: 065
     Dates: start: 20140129
  3. XOLAIR [Suspect]
     Route: 065

REACTIONS (2)
  - Convulsion [Recovered/Resolved]
  - Peripheral swelling [Unknown]
